FAERS Safety Report 22629104 (Version 1)
Quarter: 2023Q2

REPORT INFORMATION
  Report Type: Spontaneous
  Country: CN (occurrence: CN)
  Receive Date: 20230622
  Receipt Date: 20230622
  Transmission Date: 20230721
  Serious: Yes (Life-Threatening, Hospitalization, Disabling, Other)
  Sender: FDA-Public Use
  Company Number: CN-009507513-2306CHN009329

PATIENT
  Age: 64 Year
  Sex: Male
  Weight: 68 kg

DRUGS (3)
  1. KEYTRUDA [Suspect]
     Active Substance: PEMBROLIZUMAB
     Indication: Lung cancer metastatic
     Dosage: 200 MILLIGRAM, ONE TIME A DAY (ONCE)
     Route: 041
     Dates: start: 20230226, end: 20230226
  2. ALIMTA [Concomitant]
     Active Substance: PEMETREXED DISODIUM
     Indication: Lung cancer metastatic
     Dosage: 0.893 GRAM, ONE TIME A DAY (ONCE)
     Route: 041
     Dates: start: 20230226, end: 20230226
  3. CARBOPLATIN [Concomitant]
     Active Substance: CARBOPLATIN
     Indication: Lung cancer metastatic
     Dosage: 500 MILLIGRAM, ONE TIME A DAY (ONCE)
     Route: 041
     Dates: start: 20230226, end: 20230226

REACTIONS (2)
  - Immune-mediated hepatic disorder [Recovering/Resolving]
  - Autoimmune hepatitis [Recovering/Resolving]

NARRATIVE: CASE EVENT DATE: 20230321
